FAERS Safety Report 9172433 (Version 1)
Quarter: 2012Q4

REPORT INFORMATION
  Report Type: 
  Country: GB (occurrence: GB)
  Receive Date: 20120911
  Receipt Date: 20120911
  Transmission Date: 20130627
  Serious: Yes (Other)
  Sender: FDA-Public Use
  Company Number: PHHY2012GB078501

PATIENT
  Age: 42 Year
  Sex: Female
  Weight: 99.5 kg

DRUGS (2)
  1. LOSARTAN [Suspect]
     Indication: HYPERTENSION
     Dosage: 50 mg, UNK
     Route: 048
     Dates: start: 20120627, end: 20120824
  2. RAMIPRIL [Concomitant]
     Dosage: 1.25 mg, UNK
     Dates: start: 20120301, end: 20120724

REACTIONS (4)
  - Suicidal ideation [Recovered/Resolved]
  - Feeling abnormal [Recovered/Resolved]
  - Crying [Recovered/Resolved]
  - Feelings of worthlessness [Recovered/Resolved]
